FAERS Safety Report 25958696 (Version 2)
Quarter: 2025Q4

REPORT INFORMATION
  Report Type: Spontaneous
  Country: EU (occurrence: EU)
  Receive Date: 20251024
  Receipt Date: 20251201
  Transmission Date: 20260117
  Serious: Yes (Death, Hospitalization, Other)
  Sender: REGENERON
  Company Number: EU-REGENERON PHARMACEUTICALS, INC.-2025-168784

PATIENT
  Age: 65 Year
  Sex: Female

DRUGS (3)
  1. LIBTAYO [Suspect]
     Active Substance: CEMIPLIMAB-RWLC
     Indication: Non-small cell lung cancer
     Dosage: 350 MG
     Dates: start: 20250908
  2. CISPLATIN [Suspect]
     Active Substance: CISPLATIN
     Indication: Non-small cell lung cancer
     Dosage: 100 MG
     Dates: start: 20250908
  3. PEMETREXED [Suspect]
     Active Substance: PEMETREXED
     Indication: Non-small cell lung cancer
     Dosage: 700 MG
     Dates: start: 20250908

REACTIONS (2)
  - Myocarditis-myositis-myasthenia gravis overlap syndrome [Fatal]
  - Disease progression [Unknown]

NARRATIVE: CASE EVENT DATE: 20250901
